FAERS Safety Report 8062203-7 (Version None)
Quarter: 2012Q1

REPORT INFORMATION
  Report Type: 
  Country: None (occurrence: None)
  Receive Date: 20120123
  Receipt Date: 20120113
  Transmission Date: 20120608
  Serious: Yes (Hospitalization)
  Sender: FDA-Public Use
  Company Number: US-BRISTOL-MYERS SQUIBB COMPANY-16349920

PATIENT
  Age: 64 Year
  Sex: Male
  Weight: 95 kg

DRUGS (1)
  1. ORENCIA [Suspect]
     Indication: RHEUMATOID ARTHRITIS
     Dosage: STOPPED ORENCIA FOR FEW MONTHS RESTARTED HAD 3 IV INF AND SWITCHED TO SC ORENCIA PREVIOUS MONTH
     Route: 042

REACTIONS (3)
  - ROAD TRAFFIC ACCIDENT [None]
  - LIP SWELLING [None]
  - THYROID DISORDER [None]
